FAERS Safety Report 8473067-1 (Version None)
Quarter: 2012Q2

REPORT INFORMATION
  Report Type: 
  Country: None (occurrence: None)
  Receive Date: 20120627
  Receipt Date: 20120624
  Transmission Date: 20120825
  Serious: Yes (Hospitalization)
  Sender: FDA-Public Use
  Company Number: FR-ROCHE-1081453

PATIENT
  Age: 69 Year
  Sex: Female
  Weight: 67.5 kg

DRUGS (1)
  1. MIRCERA [Suspect]
     Indication: NEPHROGENIC ANAEMIA
     Dates: start: 20110803

REACTIONS (2)
  - RENAL DISORDER [None]
  - DIARRHOEA [None]
